FAERS Safety Report 4378197-1 (Version None)
Quarter: 2004Q2

REPORT INFORMATION
  Report Type: 
  Country: None (occurrence: None)
  Receive Date: 20040609
  Receipt Date: 20040525
  Transmission Date: 20050107
  Serious: Yes (Hospitalization)
  Sender: FDA-Public Use
  Company Number: EWC991104979

PATIENT
  Age: 75 Year
  Sex: Male

DRUGS (8)
  1. ZYPREXA [Suspect]
     Indication: DEMENTIA ALZHEIMER'S TYPE
     Dosage: 5 MG/1 DAY
     Dates: start: 19991115, end: 19991120
  2. ZYPREXA [Suspect]
     Indication: SCHIZOPHRENIA
     Dosage: 5 MG/1 DAY
     Dates: start: 19991115, end: 19991120
  3. ARICEPT [Concomitant]
  4. POTASSIUM CHLORIDE [Concomitant]
  5. ATIVAN [Concomitant]
  6. PAROXETINE HCL [Concomitant]
  7. IMOVANE (ZOPICLONE) [Concomitant]
  8. ASPIRIN [Concomitant]

REACTIONS (6)
  - CARDIOGENIC SHOCK [None]
  - DRUG INTERACTION [None]
  - HYPOTHERMIA [None]
  - LOSS OF CONSCIOUSNESS [None]
  - MIOSIS [None]
  - SINUS BRADYCARDIA [None]
